FAERS Safety Report 13874147 (Version 1)
Quarter: 2017Q3

REPORT INFORMATION
  Report Type: Report from Study
  Country: DE (occurrence: DE)
  Receive Date: 20170816
  Receipt Date: 20170816
  Transmission Date: 20171127
  Serious: Yes (Hospitalization)
  Sender: FDA-Public Use
  Company Number: DE-MYLANLABS-2017M1050223

PATIENT

DRUGS (18)
  1. LETROZOLE. [Suspect]
     Active Substance: LETROZOLE
     Indication: PRODUCT USED FOR UNKNOWN INDICATION
     Dosage: 2.5 MG, QD
     Route: 048
     Dates: start: 20160916
  2. PALBOCICLIB [Suspect]
     Active Substance: PALBOCICLIB
     Indication: BREAST CANCER
     Dosage: 125 MG, QD
     Route: 048
     Dates: start: 20160916
  3. SIMVASTATIN. [Concomitant]
     Active Substance: SIMVASTATIN
     Indication: HYPERCHOLESTEROLAEMIA
     Dosage: UNK
  4. SINUPRET [Concomitant]
     Active Substance: HERBALS
     Indication: PNEUMONIA
     Dosage: UNK
     Dates: start: 20161222, end: 20170111
  5. TAVOR (LORAZEPAM) [Concomitant]
     Active Substance: LORAZEPAM
     Indication: INSOMNIA
     Dosage: UNK
  6. ISLA-MOOS [Concomitant]
     Indication: CHILLS
     Dosage: UNK
     Dates: end: 201701
  7. FERROSANOL [Concomitant]
     Active Substance: FERROUS GLUCONATE
     Indication: PROPHYLAXIS
  8. XGEVA [Concomitant]
     Active Substance: DENOSUMAB
     Indication: PROPHYLAXIS
     Dosage: UNK
  9. CIPROFLOXACIN. [Concomitant]
     Active Substance: CIPROFLOXACIN
     Indication: PNEUMONIA
     Dosage: UNK
     Dates: start: 20161215, end: 20161219
  10. DEKRISTOL [Concomitant]
     Active Substance: CHOLECALCIFEROL
     Indication: PROPHYLAXIS
     Dosage: UNK
  11. CALCIMED [Concomitant]
     Indication: PROPHYLAXIS
     Dosage: UNK
  12. LYMPHOMYOSOT [Concomitant]
     Indication: PROPHYLAXIS
     Dosage: UNK
  13. INZELLOVAL [Concomitant]
     Indication: PROPHYLAXIS
     Dosage: UNK
  14. ORTHOMOL [Concomitant]
     Indication: PROPHYLAXIS
     Dosage: UNK
  15. OLYNTH [Concomitant]
     Active Substance: XYLOMETAZOLINE HYDROCHLORIDE
     Indication: CHILLS
     Dosage: UNK
     Dates: start: 20161106
  16. NAC STADA [Concomitant]
     Indication: PNEUMONIA
     Dosage: UNK
     Dates: start: 20161222, end: 20170111
  17. IBEROGAST [Concomitant]
     Active Substance: HERBALS
     Indication: NAUSEA
     Dosage: UNK
  18. CEFUROXIM [Concomitant]
     Active Substance: CEFUROXIME
     Indication: PRODUCT USED FOR UNKNOWN INDICATION
     Dosage: UNK
     Dates: start: 20161214, end: 20161214

REACTIONS (1)
  - General physical health deterioration [Not Recovered/Not Resolved]

NARRATIVE: CASE EVENT DATE: 20170726
